FAERS Safety Report 19034585 (Version 2)
Quarter: 2021Q1

REPORT INFORMATION
  Report Type: Spontaneous
  Country: US (occurrence: US)
  Receive Date: 20210320
  Receipt Date: 20210326
  Transmission Date: 20210420
  Serious: No
  Sender: FDA-Public Use
  Company Number: US-TAKEDA-2021TUS017753

PATIENT
  Sex: Female
  Weight: 54 kg

DRUGS (6)
  1. VALACYCLOVIR [Concomitant]
     Active Substance: VALACYCLOVIR HYDROCHLORIDE
  2. VYVANSE [Suspect]
     Active Substance: LISDEXAMFETAMINE DIMESYLATE
     Indication: ATTENTION DEFICIT HYPERACTIVITY DISORDER
     Dosage: 50 MILLIGRAM, QD
     Route: 065
  3. VITAMIN D3 [Concomitant]
     Active Substance: CHOLECALCIFEROL
  4. CHROMIUM PICOLINATE [Concomitant]
     Active Substance: CHROMIUM PICOLINATE
  5. VITAMIN D2 + CALCIUM [CALCIUM GLUCONATE;CALCIUM PHOSPHATE;ERGOCALCIFER [Concomitant]
  6. VITAMIN B [Concomitant]
     Active Substance: VITAMIN B

REACTIONS (5)
  - Colonoscopy [Unknown]
  - Product physical issue [Unknown]
  - Product taste abnormal [Unknown]
  - Product tampering [Unknown]
  - Drug ineffective [Unknown]
